FAERS Safety Report 23970994 (Version 1)
Quarter: 2024Q2

REPORT INFORMATION
  Report Type: Spontaneous
  Country: AU (occurrence: AU)
  Receive Date: 20240613
  Receipt Date: 20240613
  Transmission Date: 20240716
  Serious: Yes (Other)
  Sender: FDA-Public Use
  Company Number: None

PATIENT
  Age: 44 Year
  Sex: Female

DRUGS (2)
  1. PREDNISOLONE [Suspect]
     Active Substance: PREDNISOLONE
     Indication: Epstein-Barr viraemia
     Dosage: UNK; SHORT COURSE
     Route: 048
     Dates: start: 2021, end: 2021
  2. HYDROXYCHLOROQUINE [Concomitant]
     Active Substance: HYDROXYCHLOROQUINE
     Indication: Epstein-Barr viraemia
     Dosage: UNK; SHORT COURSE
     Route: 065
     Dates: start: 2021, end: 2021

REACTIONS (1)
  - Diffuse large B-cell lymphoma [Recovered/Resolved]
